FAERS Safety Report 6272405-8 (Version None)
Quarter: 2009Q3

REPORT INFORMATION
  Report Type: 
  Country: None (occurrence: None)
  Receive Date: 20090717
  Receipt Date: 20090708
  Transmission Date: 20100115
  Serious: Yes (Other)
  Sender: FDA-Public Use
  Company Number: JP-MERCK-0907USA01643

PATIENT
  Age: 36 Year
  Sex: Male
  Weight: 68 kg

DRUGS (2)
  1. PROPECIA [Suspect]
     Indication: ALOPECIA
     Route: 048
     Dates: start: 20080101, end: 20080101
  2. PROPECIA [Suspect]
     Route: 048
     Dates: start: 20080101

REACTIONS (1)
  - ALOPECIA [None]
